FAERS Safety Report 14597258 (Version 5)
Quarter: 2018Q3

REPORT INFORMATION
  Report Type: Spontaneous
  Country: JP (occurrence: JP)
  Receive Date: 20180305
  Receipt Date: 20180828
  Transmission Date: 20181010
  Serious: Yes (Death, Hospitalization, Other)
  Sender: FDA-Public Use
  Company Number: JP-BRISTOL-MYERS SQUIBB COMPANY-BMS-2018-020456

PATIENT
  Age: 60 Year
  Sex: Female

DRUGS (2)
  1. AFATINIB MALEATE [Suspect]
     Active Substance: AFATINIB DIMALEATE
     Indication: PRODUCT USED FOR UNKNOWN INDICATION
     Dosage: UNK
     Route: 065
     Dates: start: 20160903, end: 20161004
  2. OPDIVO [Suspect]
     Active Substance: NIVOLUMAB
     Indication: NON-SMALL CELL LUNG CANCER RECURRENT
     Dosage: 140 MG, UNK
     Route: 041
     Dates: start: 20160509, end: 20160704

REACTIONS (3)
  - Malignant neoplasm progression [Fatal]
  - Diarrhoea [Recovering/Resolving]
  - Vomiting [Recovering/Resolving]

NARRATIVE: CASE EVENT DATE: 20160725
